FAERS Safety Report 9012063 (Version 2)
Quarter: 2014Q1

REPORT INFORMATION
  Report Type: Spontaneous
  Country: US (occurrence: US)
  Receive Date: 20130114
  Receipt Date: 20140117
  Transmission Date: 20141002
  Serious: Yes (Other)
  Sender: FDA-Public Use
  Company Number: US-BAYER-2013-003277

PATIENT
  Age: 31 Year
  Sex: Female

DRUGS (7)
  1. YASMIN [Suspect]
     Indication: ACNE
  2. YAZ [Suspect]
     Indication: ACNE
  3. RANITIDINE [Concomitant]
     Dosage: 150 MG, UNK
     Route: 048
     Dates: start: 20080115, end: 20080402
  4. AMOXICILLIN [Concomitant]
     Dosage: 875 MG, UNK
     Route: 048
     Dates: start: 20080125
  5. ATIVAN [Concomitant]
     Dosage: 150 MG, UNK
     Route: 048
     Dates: start: 20080407
  6. XANAX [Concomitant]
     Dosage: 0.5 MG, UNK
     Route: 048
     Dates: start: 20080407
  7. ZANTAC [Concomitant]

REACTIONS (9)
  - Deep vein thrombosis [None]
  - Pulmonary embolism [None]
  - Cholecystectomy [None]
  - Biliary dyskinesia [None]
  - Cholecystitis [None]
  - Injury [None]
  - Pain [None]
  - Anxiety [None]
  - Pain [None]
